FAERS Safety Report 13943564 (Version 1)
Quarter: 2017Q3

REPORT INFORMATION
  Report Type: Spontaneous
  Country: CA (occurrence: CA)
  Receive Date: 20170907
  Receipt Date: 20170907
  Transmission Date: 20171128
  Serious: Yes (Hospitalization)
  Sender: FDA-Public Use
  Company Number: CA-VISTAPHARM, INC.-VER201708-000451

PATIENT
  Age: 39 Year
  Sex: Male

DRUGS (1)
  1. PHENYTOIN. [Suspect]
     Active Substance: PHENYTOIN
     Indication: EPILEPSY

REACTIONS (5)
  - Adrenal insufficiency [Unknown]
  - Toxicity to various agents [Unknown]
  - Hypothyroidism [Unknown]
  - Endocrine disorder [Unknown]
  - Hypogonadism [Unknown]
